FAERS Safety Report 5188881-8 (Version None)
Quarter: 2006Q4

REPORT INFORMATION
  Report Type: 
  Country: None (occurrence: None)
  Receive Date: 20061221
  Receipt Date: 20061211
  Transmission Date: 20070319
  Serious: Yes (Congenital Anomaly)
  Sender: FDA-Public Use
  Company Number: BW-BOEHRINGER INGELHEIM PHARMACEUTICALS, INC.-2006-BP-14333BP

PATIENT
  Sex: Male
  Weight: 3.15 kg

DRUGS (4)
  1. VIRAMUNE [Suspect]
     Indication: HIV INFECTION
     Route: 015
     Dates: start: 20041027
  2. VIRAMUNE [Suspect]
     Route: 015
     Dates: start: 20041013, end: 20041027
  3. COMBIVIR [Suspect]
     Indication: HIV INFECTION
     Route: 015
     Dates: start: 20040916
  4. SUSTIVA [Suspect]
     Indication: HIV INFECTION
     Route: 015
     Dates: start: 20040916, end: 20041013

REACTIONS (3)
  - CONGENITAL ANOMALY [None]
  - DRUG EXPOSURE DURING PREGNANCY [None]
  - LIMB REDUCTION DEFECT [None]
